FAERS Safety Report 4303504-5 (Version None)
Quarter: 2004Q1

REPORT INFORMATION
  Report Type: 
  Country: None (occurrence: None)
  Receive Date: 20040223
  Receipt Date: 20040210
  Transmission Date: 20041129
  Serious: Yes (Hospitalization, Other)
  Sender: FDA-Public Use
  Company Number: 200402223

PATIENT
  Age: 38 Year
  Sex: Male

DRUGS (1)
  1. PEPCID AC [Suspect]
     Indication: ABDOMINAL DISCOMFORT
     Dosage: 10 MG ONCE PO
     Route: 048
     Dates: start: 20030906, end: 20030906

REACTIONS (2)
  - HEPATITIS FULMINANT [None]
  - URTICARIA [None]
